FAERS Safety Report 4680424-8 (Version None)
Quarter: 2005Q2

REPORT INFORMATION
  Report Type: 
  Country: None (occurrence: None)
  Receive Date: 20050602
  Receipt Date: 20050531
  Transmission Date: 20051028
  Serious: Yes (Hospitalization)
  Sender: FDA-Public Use
  Company Number: FR-MERCK-0505FRA00120

PATIENT
  Age: 17 Year
  Sex: Female

DRUGS (2)
  1. NOROXIN [Suspect]
     Indication: PROPHYLAXIS
     Route: 048
     Dates: start: 20050310, end: 20050531
  2. HORMONAL CONTRACEPTIVES (UNSPECIFIED) [Concomitant]
     Indication: CONTRACEPTION
     Route: 048

REACTIONS (2)
  - MIGRAINE [None]
  - TENDONITIS [None]
